FAERS Safety Report 15857692 (Version 2)
Quarter: 2019Q1

REPORT INFORMATION
  Report Type: Report from Study
  Country: US (occurrence: AR)
  Receive Date: 20190123
  Receipt Date: 20190207
  Transmission Date: 20190417
  Serious: Yes (Hospitalization)
  Sender: FDA-Public Use
  Company Number: US-SUNOVION-2019SUN000225

PATIENT
  Age: 69 Year
  Sex: Male

DRUGS (5)
  1. CORBIS [Concomitant]
     Indication: PRODUCT USED FOR UNKNOWN INDICATION
     Dosage: UNK
     Route: 065
  2. DBI [Concomitant]
     Active Substance: PHENFORMIN HYDROCHLORIDE
     Indication: PRODUCT USED FOR UNKNOWN INDICATION
     Dosage: 850 MG, QD
     Route: 065
  3. LOTRIAL [Concomitant]
     Active Substance: ENALAPRIL MALEATE
     Indication: PRODUCT USED FOR UNKNOWN INDICATION
     Dosage: UNK
     Route: 065
  4. INDACATEROL [Suspect]
     Active Substance: INDACATEROL
     Indication: TOTAL LUNG CAPACITY DECREASED
     Dosage: UNK UNK, QD (STARTED 10 DAYS AGO)
     Route: 065
     Dates: start: 20190104
  5. INDACATEROL [Suspect]
     Active Substance: INDACATEROL
     Dosage: 150 ?G, QD
     Route: 065
     Dates: start: 20190121

REACTIONS (3)
  - Fluid retention [Unknown]
  - Pleural effusion [Recovering/Resolving]
  - Product use in unapproved indication [Unknown]

NARRATIVE: CASE EVENT DATE: 20190111
